FAERS Safety Report 8713756 (Version 3)
Quarter: 2012Q4

REPORT INFORMATION
  Report Type: 
  Country: US (occurrence: US)
  Receive Date: 20120808
  Receipt Date: 20120912
  Transmission Date: 20130627
  Serious: Yes (Life-Threatening, Hospitalization)
  Sender: FDA-Public Use
  Company Number: US-GILEAD-2012-0059263

PATIENT
  Age: 27 Year
  Sex: Female

DRUGS (2)
  1. LETAIRIS [Suspect]
     Indication: PULMONARY ARTERIAL HYPERTENSION
     Dosage: 5 mg, UNK
     Route: 048
     Dates: start: 20120628, end: 201207
  2. LETAIRIS [Suspect]
     Dosage: 10 mg, UNK
     Route: 048
     Dates: start: 201207

REACTIONS (3)
  - Thrombosis [Not Recovered/Not Resolved]
  - Pulmonary arterial hypertension [Not Recovered/Not Resolved]
  - Medical device complication [Unknown]
